FAERS Safety Report 5867176-0 (Version None)
Quarter: 2008Q3

REPORT INFORMATION
  Report Type: 
  Country: None (occurrence: None)
  Receive Date: 20080902
  Receipt Date: 20080827
  Transmission Date: 20090109
  Serious: Yes (Hospitalization)
  Sender: FDA-Public Use
  Company Number: US-BAYER-200811561BCC

PATIENT
  Age: 58 Year
  Sex: Male
  Weight: 125 kg

DRUGS (3)
  1. BACTINE [Suspect]
     Indication: PROPHYLAXIS
     Route: 061
  2. ASPIRIN [Suspect]
     Indication: HEADACHE
     Dosage: AS USED: 650 MG  UNIT DOSE: 325 MG
     Route: 048
     Dates: start: 20011101
  3. ATENOLOL [Concomitant]

REACTIONS (4)
  - APHASIA [None]
  - CEREBROVASCULAR ACCIDENT [None]
  - HEADACHE [None]
  - NAUSEA [None]
